FAERS Safety Report 14695200 (Version 3)
Quarter: 2018Q2

REPORT INFORMATION
  Report Type: Report from Study
  Country: ES (occurrence: ES)
  Receive Date: 20180329
  Receipt Date: 20180606
  Transmission Date: 20180711
  Serious: Yes (Death, Other)
  Sender: FDA-Public Use
  Company Number: ES-ASPEN-GLO2018ES002712

PATIENT
  Age: 23 Year
  Sex: Male

DRUGS (21)
  1. DEXAMETHASONE. [Suspect]
     Active Substance: DEXAMETHASONE
     Indication: ACUTE LYMPHOCYTIC LEUKAEMIA
     Dosage: SECOND CYCLE
     Route: 065
     Dates: start: 2014
  2. METHOTREXATE SODIUM. [Suspect]
     Active Substance: METHOTREXATE SODIUM
     Indication: ACUTE LYMPHOCYTIC LEUKAEMIA RECURRENT
     Dosage: REGIMEN #1, FIRST CYCLE
     Route: 065
     Dates: start: 20140415
  3. RITUXIMAB. [Suspect]
     Active Substance: RITUXIMAB
     Indication: PRODUCT USED FOR UNKNOWN INDICATION
     Dosage: REGIMEN #1, FIRST CYCLE
     Route: 065
  4. ICLUSIG [Suspect]
     Active Substance: PONATINIB
     Indication: ACUTE LYMPHOCYTIC LEUKAEMIA RECURRENT
     Dosage: 45 MG, QD
     Route: 048
  5. VINCRISTINE SULFATE. [Suspect]
     Active Substance: VINCRISTINE SULFATE
     Indication: ACUTE LYMPHOCYTIC LEUKAEMIA RECURRENT
     Dosage: SECOND CYCLE
     Route: 065
     Dates: start: 2014
  6. DOXORUBICIN HCL [Suspect]
     Active Substance: DOXORUBICIN HYDROCHLORIDE
     Dosage: REGIMEN #1, FIRST CYCLE
     Route: 065
     Dates: start: 20140415
  7. PONATINIB [Suspect]
     Active Substance: PONATINIB
     Dosage: AFTER HEMATOPOIETIC STEM CELL TRANSPLANTATION
     Route: 065
  8. CYTARABINE. [Suspect]
     Active Substance: CYTARABINE
     Indication: ACUTE LYMPHOCYTIC LEUKAEMIA RECURRENT
     Dosage: SECOND CYCLE
     Route: 065
     Dates: start: 2014
  9. CYTARABINE. [Suspect]
     Active Substance: CYTARABINE
     Dosage: REGIMEN #1, FIRST CYCLE
     Route: 065
     Dates: start: 20140415
  10. BUSULFAN. [Suspect]
     Active Substance: BUSULFAN
     Indication: ACUTE LYMPHOCYTIC LEUKAEMIA RECURRENT
     Dosage: REGIMEN #1
     Route: 065
     Dates: start: 20140928
  11. DEXAMETHASONE. [Suspect]
     Active Substance: DEXAMETHASONE
     Indication: ACUTE LYMPHOCYTIC LEUKAEMIA RECURRENT
     Dosage: REGIMEN #1, FIRST CYCLE
     Route: 065
     Dates: start: 20140415
  12. CYCLOPHOSPHAMIDE. [Suspect]
     Active Substance: CYCLOPHOSPHAMIDE
     Indication: ACUTE LYMPHOCYTIC LEUKAEMIA RECURRENT
     Dosage: UNK
     Route: 065
  13. FLUDARABINE [Suspect]
     Active Substance: FLUDARABINE PHOSPHATE
     Indication: ACUTE LYMPHOCYTIC LEUKAEMIA RECURRENT
     Dosage: REGIMEN #1
     Route: 065
     Dates: start: 20140928
  14. METHOTREXATE SODIUM. [Suspect]
     Active Substance: METHOTREXATE SODIUM
     Dosage: SECOND CYCLE
     Route: 065
     Dates: start: 2014
  15. PONATINIB [Suspect]
     Active Substance: PONATINIB
     Indication: ACUTE LYMPHOCYTIC LEUKAEMIA RECURRENT
     Dosage: 45 MG
     Route: 048
     Dates: start: 20140415
  16. PONATINIB [Suspect]
     Active Substance: PONATINIB
     Dosage: SECOND CYCLE
     Route: 065
  17. VINCRISTINE SULFATE. [Suspect]
     Active Substance: VINCRISTINE SULFATE
     Dosage: REGIMEN #1, FIRST CYCLE
     Route: 065
     Dates: start: 20140415
  18. DOXORUBICIN HCL [Suspect]
     Active Substance: DOXORUBICIN HYDROCHLORIDE
     Indication: ACUTE LYMPHOCYTIC LEUKAEMIA RECURRENT
     Dosage: SECOND CYCLE
     Route: 065
     Dates: start: 2014
  19. THIOTEPA. [Suspect]
     Active Substance: THIOTEPA
     Indication: ACUTE LYMPHOCYTIC LEUKAEMIA RECURRENT
     Dosage: (4 CYCLES) REGIMEN #1
     Route: 065
     Dates: start: 20140928
  20. GENOXAL [Suspect]
     Active Substance: CYCLOPHOSPHAMIDE
     Indication: ACUTE LYMPHOCYTIC LEUKAEMIA RECURRENT
     Dosage: SECOND CYCLE
     Route: 065
     Dates: start: 2014
  21. GENOXAL [Suspect]
     Active Substance: CYCLOPHOSPHAMIDE
     Dosage: REGIMEN #1, FIRST CYCLE
     Route: 065
     Dates: start: 20140415

REACTIONS (6)
  - Acute lymphocytic leukaemia recurrent [Unknown]
  - Post transplant lymphoproliferative disorder [Recovered/Resolved]
  - Cytomegalovirus infection [Unknown]
  - Viral haemorrhagic cystitis [Unknown]
  - Epstein-Barr virus infection [Recovered/Resolved]
  - Autoimmune lymphoproliferative syndrome [Unknown]

NARRATIVE: CASE EVENT DATE: 20141015
